FAERS Safety Report 7594670-7 (Version None)
Quarter: 2011Q3

REPORT INFORMATION
  Report Type: 
  Country: None (occurrence: None)
  Receive Date: 20110707
  Receipt Date: 20110623
  Transmission Date: 20111222
  Serious: Yes (Hospitalization)
  Sender: FDA-Public Use
  Company Number: CA-JNJFOC-20110507509

PATIENT
  Sex: Female
  Weight: 114 kg

DRUGS (11)
  1. MICARDIS HCT [Concomitant]
     Dosage: 80/12.5
     Route: 048
  2. CRESTOR [Concomitant]
     Route: 048
  3. REMICADE [Suspect]
     Indication: COLITIS ULCERATIVE
     Route: 042
     Dates: start: 20110315
  4. REMICADE [Suspect]
     Route: 042
     Dates: start: 20110504
  5. DIAMICRON MR [Concomitant]
     Route: 048
  6. LEVOTHYROXINE SODIUM [Concomitant]
     Route: 048
  7. REMICADE [Suspect]
     Indication: CROHN'S DISEASE
     Route: 042
     Dates: start: 20110315
  8. REMICADE [Suspect]
     Route: 042
     Dates: start: 20110504
  9. ENTOCORT EC [Concomitant]
     Route: 054
  10. ESCITALOPRAM [Concomitant]
     Route: 048
  11. MESALAMINE [Concomitant]
     Route: 048

REACTIONS (4)
  - DIARRHOEA [None]
  - PROCTALGIA [None]
  - OROPHARYNGEAL PAIN [None]
  - FATIGUE [None]
